FAERS Safety Report 5055070-7 (Version None)
Quarter: 2006Q3

REPORT INFORMATION
  Report Type: 
  Country: None (occurrence: None)
  Receive Date: 20060719
  Receipt Date: 20060710
  Transmission Date: 20061208
  Serious: Yes (Hospitalization)
  Sender: FDA-Public Use
  Company Number: FR-GILEAD-2006-0009851

PATIENT
  Age: 45 Year
  Sex: Male

DRUGS (5)
  1. VIREAD [Suspect]
     Route: 048
     Dates: start: 20050203
  2. TMC114 [Suspect]
     Route: 048
     Dates: start: 20060306
  3. VIDEX [Suspect]
     Route: 048
     Dates: start: 20060306
  4. NORVIR [Suspect]
     Route: 048
     Dates: start: 20010611
  5. FUZEON [Suspect]
     Route: 058
     Dates: start: 20060306

REACTIONS (4)
  - DIFFUSE LARGE B-CELL LYMPHOMA [None]
  - DRUG INEFFECTIVE [None]
  - LYMPHOMA [None]
  - OVERDOSE [None]
